FAERS Safety Report 5902057-5 (Version None)
Quarter: 2008Q3

REPORT INFORMATION
  Report Type: 
  Country: None (occurrence: None)
  Receive Date: 20080929
  Receipt Date: 20080919
  Transmission Date: 20090109
  Serious: Yes (Other)
  Sender: FDA-Public Use
  Company Number: US-WYE-H05150808

PATIENT
  Sex: Male
  Weight: 93.98 kg

DRUGS (6)
  1. NEUMEGA [Suspect]
     Indication: PLATELET COUNT DECREASED
     Dosage: 4500MCG AT UNKNOWN FREQUENCY
     Route: 058
     Dates: start: 20080326, end: 20080331
  2. LYRICA [Concomitant]
     Dosage: UNKNOWN
     Route: 065
  3. MINOCIN [Concomitant]
     Dosage: UNKNOWN
     Route: 065
  4. ELIDEL [Concomitant]
     Dosage: UNKNOWN
     Route: 065
  5. CETUXIMAB [Concomitant]
     Dosage: UNKNOWN
  6. COMPAZINE [Concomitant]
     Dosage: UNKNOWN
     Route: 048

REACTIONS (2)
  - CAPILLARY LEAK SYNDROME [None]
  - OEDEMA PERIPHERAL [None]
